FAERS Safety Report 18573303 (Version 1)
Quarter: 2020Q4

REPORT INFORMATION
  Report Type: Report from Study
  Country: TR (occurrence: TR)
  Receive Date: 20201203
  Receipt Date: 20201203
  Transmission Date: 20210114
  Serious: Yes (Hospitalization, Other)
  Sender: FDA-Public Use
  Company Number: TR-VISTAPHARM, INC.-VER202011-002069

PATIENT
  Age: 8 Year
  Sex: Male

DRUGS (1)
  1. HYDROCODONE AND ACETAMINOPHEN [Suspect]
     Active Substance: ACETAMINOPHEN\HYDROCODONE
     Indication: PROCEDURAL PAIN
     Dosage: UNKNOWN
     Route: 065

REACTIONS (3)
  - Acute hepatic failure [Unknown]
  - Toxicity to various agents [Unknown]
  - Hepatic encephalopathy [Unknown]
